FAERS Safety Report 8248766-7 (Version None)
Quarter: 2012Q1

REPORT INFORMATION
  Report Type: 
  Country: None (occurrence: None)
  Receive Date: 20120331
  Receipt Date: 20120328
  Transmission Date: 20120608
  Serious: Yes (Other)
  Sender: FDA-Public Use
  Company Number: PHHY2012AU022852

PATIENT
  Sex: Female

DRUGS (2)
  1. VESICARE [Concomitant]
     Dates: start: 20110101
  2. GILENYA [Suspect]
     Dosage: 0.5 MG, QD
     Route: 048
     Dates: start: 20111113, end: 20120301

REACTIONS (2)
  - SKIN DISCOLOURATION [None]
  - MALIGNANT MELANOMA [None]
